FAERS Safety Report 6765810-4 (Version None)
Quarter: 2010Q2

REPORT INFORMATION
  Report Type: 
  Country: None (occurrence: None)
  Receive Date: 20100611
  Receipt Date: 20100601
  Transmission Date: 20101027
  Serious: Yes (Other)
  Sender: FDA-Public Use
  Company Number: US-JNJFOC-20100501447

PATIENT
  Sex: Male
  Weight: 78.47 kg

DRUGS (5)
  1. REMICADE [Suspect]
     Indication: CROHN'S DISEASE
     Route: 042
  2. REMICADE [Suspect]
     Route: 042
  3. REMICADE [Suspect]
     Route: 042
  4. REMICADE [Suspect]
     Route: 042
  5. ALLEGRA D 24 HOUR [Concomitant]
     Indication: SINUS DISORDER

REACTIONS (4)
  - AMNESIA [None]
  - DIZZINESS [None]
  - PERIPHERAL COLDNESS [None]
  - SINUS DISORDER [None]
